FAERS Safety Report 6771709-X (Version None)
Quarter: 2010Q2

REPORT INFORMATION
  Report Type: 
  Country: None (occurrence: None)
  Receive Date: 20100616
  Receipt Date: 20090720
  Transmission Date: 20101027
  Serious: No
  Sender: FDA-Public Use
  Company Number: US-ASTRAZENECA-2009SE05374

PATIENT
  Age: 22766 Day
  Sex: Female
  Weight: 74.8 kg

DRUGS (3)
  1. ATACAND [Suspect]
     Indication: HYPERTENSION
     Route: 048
     Dates: start: 20090710
  2. ASPIRIN [Concomitant]
  3. DETROL LA [Concomitant]

REACTIONS (4)
  - ANXIETY [None]
  - FEELING ABNORMAL [None]
  - HYPOAESTHESIA [None]
  - PRURITUS [None]
